FAERS Safety Report 18511327 (Version 1)
Quarter: 2020Q4

REPORT INFORMATION
  Report Type: Spontaneous
  Country: GB (occurrence: GB)
  Receive Date: 20201117
  Receipt Date: 20201117
  Transmission Date: 20210114
  Serious: Yes (Life-Threatening)
  Sender: FDA-Public Use
  Company Number: GB-MYLANLABS-2020M1094116

PATIENT
  Age: 77 Year
  Sex: Male
  Weight: 104 kg

DRUGS (11)
  1. BETAMETHASONE VALERATE. [Concomitant]
     Active Substance: BETAMETHASONE VALERATE
     Dosage: 1 DOSAGE FORM, PRN(ONCE A DAY)
     Route: 061
  2. DOXAZOSIN [Concomitant]
     Active Substance: DOXAZOSIN MESYLATE
     Dosage: 8 MILLIGRAM, QD
     Route: 048
  3. GLICLAZIDE [Concomitant]
     Active Substance: GLICLAZIDE
     Dosage: 320 MILLIGRAM, QD
     Route: 048
  4. SITAGLIPTIN [Concomitant]
     Active Substance: SITAGLIPTIN
     Dosage: 100 MILLIGRAM, QD
     Route: 048
  5. ACETYLSALICYLIC ACID [Concomitant]
     Active Substance: ASPIRIN
     Dosage: 75 MILLIGRAM, QD
     Route: 048
  6. ATENOLOL. [Concomitant]
     Active Substance: ATENOLOL
     Dosage: 50 MILLIGRAM, QD(EACH MORNING)
     Route: 048
  7. CLARITHROMYCIN. [Suspect]
     Active Substance: CLARITHROMYCIN
     Indication: LOCALISED INFECTION
     Dosage: 500 MILLIGRAM
     Route: 048
     Dates: start: 20200810, end: 20200811
  8. HYDROMOL                           /06335901/ [Concomitant]
     Active Substance: PARAFFIN\WAX, EMULSIFYING
     Dosage: 1 DOSAGE FORM, PRN(APPLY)
     Route: 061
  9. LISINOPRIL. [Concomitant]
     Active Substance: LISINOPRIL
     Dosage: 20 MILLIGRAM, QD
     Route: 048
  10. SIMVASTATIN. [Concomitant]
     Active Substance: SIMVASTATIN
     Dosage: 40 MILLIGRAM, QD (AT NIGHT)
     Route: 048
  11. BUMETANIDE. [Concomitant]
     Active Substance: BUMETANIDE
     Dosage: 2 MILLIGRAM, QD(EACH MORNING)
     Route: 048

REACTIONS (3)
  - Malaise [Recovered/Resolved]
  - Hypoglycaemia [Recovered/Resolved]
  - Cold sweat [Recovered/Resolved]

NARRATIVE: CASE EVENT DATE: 20200810
